FAERS Safety Report 10490613 (Version 2)
Quarter: 2014Q4

REPORT INFORMATION
  Report Type: Report from Study
  Country: US (occurrence: US)
  Receive Date: 20141002
  Receipt Date: 20141002
  Transmission Date: 20150528
  Serious: No
  Sender: FDA-Public Use
  Company Number: US-GLAXOSMITHKLINE-A0948493A

PATIENT
  Sex: Female

DRUGS (8)
  1. UNSPECIFIED INHALER [Suspect]
     Active Substance: UNSPECIFIED INGREDIENT
     Indication: PRODUCT USED FOR UNKNOWN INDICATION
     Route: 055
  2. ANTI-CHOLESTEROL MEDICATION [Suspect]
     Active Substance: UNSPECIFIED INGREDIENT
     Indication: BLOOD CHOLESTEROL
     Route: 065
  3. ADVAIR HFA [Suspect]
     Active Substance: FLUTICASONE PROPIONATE\SALMETEROL XINAFOATE
     Indication: CHRONIC OBSTRUCTIVE PULMONARY DISEASE
     Route: 055
  4. BLOOD PRESSURE MEDICATION [Suspect]
     Active Substance: UNSPECIFIED INGREDIENT
     Indication: BLOOD PRESSURE
  5. PHYSICAL THERAPY [Concomitant]
  6. BLOOD PRESSURE MEDICATION [Suspect]
     Active Substance: UNSPECIFIED INGREDIENT
     Indication: BLOOD PRESSURE
  7. CONCURRENT MEDICATIONS [Concomitant]
     Active Substance: UNSPECIFIED INGREDIENT
  8. OXYGEN. [Concomitant]
     Active Substance: OXYGEN

REACTIONS (24)
  - Viral infection [Unknown]
  - Feeling abnormal [Unknown]
  - Oral candidiasis [Unknown]
  - Musculoskeletal pain [Unknown]
  - Poor quality sleep [Unknown]
  - Lung disorder [Not Recovered/Not Resolved]
  - Neck pain [Unknown]
  - Diaphragmalgia [Unknown]
  - Pain [Unknown]
  - Painful respiration [Unknown]
  - Chest pain [Unknown]
  - Movement disorder [Unknown]
  - Muscle spasms [Recovering/Resolving]
  - Dyspnoea [Not Recovered/Not Resolved]
  - Myalgia [Unknown]
  - Pain in extremity [Unknown]
  - Inflammation [Unknown]
  - Blood creatine increased [Unknown]
  - Oxygen saturation decreased [Unknown]
  - Chest discomfort [Unknown]
  - Nephropathy [Unknown]
  - Chronic obstructive pulmonary disease [Unknown]
  - Drug ineffective [Unknown]
  - Joint swelling [Unknown]
